FAERS Safety Report 21217956 (Version 6)
Quarter: 2023Q1

REPORT INFORMATION
  Report Type: Report from Study
  Country: CA (occurrence: CA)
  Receive Date: 20220816
  Receipt Date: 20230206
  Transmission Date: 20230418
  Serious: Yes (Death, Hospitalization)
  Sender: FDA-Public Use
  Company Number: CA-JNJFOC-20220823261

PATIENT
  Age: 74 Year
  Sex: Male
  Weight: 63 kg

DRUGS (2)
  1. REMICADE [Suspect]
     Active Substance: INFLIXIMAB
     Indication: Crohn^s disease
     Dosage: LAST DOSE ON 05-DEC-2022 AND THEN ADMINISTERED ON 06-JAN-2023.
     Route: 041
     Dates: start: 20200611
  2. REMICADE [Suspect]
     Active Substance: INFLIXIMAB
     Indication: Pulmonary sarcoidosis

REACTIONS (3)
  - Death [Fatal]
  - COVID-19 [Recovered/Resolved]
  - Inappropriate schedule of product administration [Unknown]

NARRATIVE: CASE EVENT DATE: 20220810
